FAERS Safety Report 19475955 (Version 1)
Quarter: 2021Q2

REPORT INFORMATION
  Report Type: Spontaneous
  Country: PL (occurrence: PL)
  Receive Date: 20210630
  Receipt Date: 20210630
  Transmission Date: 20210717
  Serious: Yes (Life-Threatening)
  Sender: FDA-Public Use
  Company Number: PL-TEVA-2021-PL-1927085

PATIENT
  Age: 14 Year
  Sex: Female
  Weight: 43.8 kg

DRUGS (1)
  1. TEVAGRASTIM [Suspect]
     Active Substance: FILGRASTIM
     Route: 042
     Dates: start: 20181011

REACTIONS (1)
  - Angioedema [Recovering/Resolving]

NARRATIVE: CASE EVENT DATE: 20181011
